FAERS Safety Report 4677998-X (Version None)
Quarter: 2005Q2

REPORT INFORMATION
  Report Type: 
  Country: None (occurrence: None)
  Receive Date: 20050531
  Receipt Date: 20050516
  Transmission Date: 20051028
  Serious: Yes (Other)
  Sender: FDA-Public Use
  Company Number: 2005GB00961

PATIENT
  Age: 45 Year
  Sex: Female

DRUGS (3)
  1. SEROQUEL [Suspect]
     Indication: MENTAL DISORDER
     Route: 048
     Dates: start: 20050301, end: 20050401
  2. PROZAC [Concomitant]
     Indication: MENTAL DISORDER
     Route: 048
     Dates: start: 20041101
  3. PRIADEL [Concomitant]
     Indication: MENTAL DISORDER
     Route: 048
     Dates: start: 20050101

REACTIONS (1)
  - ELECTROCARDIOGRAM QT CORRECTED INTERVAL PROLONGED [None]
